FAERS Safety Report 6997958-3 (Version None)
Quarter: 2010Q3

REPORT INFORMATION
  Report Type: 
  Country: None (occurrence: None)
  Receive Date: 20100920
  Receipt Date: 20100914
  Transmission Date: 20110219
  Serious: Yes (Other)
  Sender: FDA-Public Use
  Company Number: US-ELI_LILLY_AND_COMPANY-US201008003920

PATIENT
  Sex: Female

DRUGS (16)
  1. HUMULIN R [Suspect]
     Indication: TYPE 2 DIABETES MELLITUS
     Dosage: 30 U, UNKNOWN
  2. HUMULIN R [Suspect]
     Dosage: 131 U, UNKNOWN
  3. HUMULIN R [Suspect]
     Dosage: 0.26 ML, EACH MORNING
  4. HUMULIN R [Suspect]
     Dosage: 0.3 ML, EACH EVENING
  5. COUMADIN [Concomitant]
     Indication: ATRIAL FIBRILLATION
     Dosage: 5 MG, DAILY (1/D)
  6. TRAZODONE HCL [Concomitant]
     Indication: DEPRESSION
     Dosage: 100 MG, EACH EVENING
  7. HYDROCHLOROTHIAZIDE [Concomitant]
     Indication: HYPERTENSION
     Dosage: 25 MG, DAILY (1/D)
  8. SERTRALINE HYDROCHLORIDE [Concomitant]
     Indication: DEPRESSION
     Dosage: 100 MG, DAILY (1/D)
  9. LIPITOR [Concomitant]
     Indication: HYPERLIPIDAEMIA
     Dosage: 80 MG, DAILY (1/D)
  10. NEXIUM [Concomitant]
     Indication: GASTROOESOPHAGEAL REFLUX DISEASE
     Dosage: 40 MG, DAILY (1/D)
  11. ENABLEX /01760402/ [Concomitant]
  12. TRICOR [Concomitant]
  13. METOPROLOL [Concomitant]
  14. LEVOTHYROXINE [Concomitant]
  15. ASPIRIN [Concomitant]
  16. CENTRUM SILVER [Concomitant]

REACTIONS (3)
  - DRUG DISPENSING ERROR [None]
  - HYPOGLYCAEMIA [None]
  - INCORRECT DOSE ADMINISTERED [None]
